FAERS Safety Report 4727462-4 (Version None)
Quarter: 2005Q3

REPORT INFORMATION
  Report Type: 
  Country: None (occurrence: None)
  Receive Date: 20050727
  Receipt Date: 20050727
  Transmission Date: 20060218
  Serious: Yes (Hospitalization)
  Sender: FDA-Public Use
  Company Number: None

PATIENT
  Age: 87 Year
  Sex: Female
  Weight: 123.8 kg

DRUGS (8)
  1. COUMADIN [Suspect]
     Indication: ATRIAL FIBRILLATION
     Dosage: 2.5 QD PO CHRONIC
     Route: 048
  2. DILTIAZEM [Concomitant]
  3. FOLIC ACID [Concomitant]
  4. TAMOXIFEN [Concomitant]
  5. DIGOXIN [Concomitant]
  6. NEB TX [Concomitant]
  7. TYLENOL (CAPLET) [Concomitant]
  8. ENALAPRIL [Concomitant]

REACTIONS (5)
  - CEREBRAL HAEMATOMA [None]
  - ECCHYMOSIS [None]
  - FALL [None]
  - INTERNATIONAL NORMALISED RATIO INCREASED [None]
  - PROTHROMBIN TIME PROLONGED [None]
